APPROVED DRUG PRODUCT: INCRUSE ELLIPTA
Active Ingredient: UMECLIDINIUM BROMIDE
Strength: EQ 0.0625MG BASE/INH
Dosage Form/Route: POWDER;INHALATION
Application: N205382 | Product #001
Applicant: GLAXO GROUP LTD ENGLAND DBA GLAXOSMITHKLINE
Approved: Apr 30, 2014 | RLD: Yes | RS: Yes | Type: RX

PATENTS:
Patent 7488827 | Expires: Dec 18, 2027